FAERS Safety Report 7482469-1 (Version None)
Quarter: 2011Q2

REPORT INFORMATION
  Report Type: 
  Country: None (occurrence: None)
  Receive Date: 20110516
  Receipt Date: 20110510
  Transmission Date: 20111010
  Serious: Yes (Life-Threatening, Hospitalization)
  Sender: FDA-Public Use
  Company Number: CH-ASTRAZENECA-2011SE27532

PATIENT
  Age: 76 Year
  Sex: Female

DRUGS (9)
  1. ATENOLOL AND CHLORTHALIDONE [Suspect]
     Indication: ESSENTIAL HYPERTENSION
     Route: 048
     Dates: end: 20110318
  2. ACETAMINOPHEN [Concomitant]
  3. DIAMICRON [Suspect]
     Indication: TYPE 2 DIABETES MELLITUS
     Route: 048
     Dates: end: 20110318
  4. NOVALGIN [Suspect]
     Indication: BACK PAIN
     Route: 048
     Dates: start: 20101001, end: 20110318
  5. NOVALGIN [Suspect]
     Dosage: ONE THREE TABLETS PER DAY
     Route: 048
  6. NEXIUM [Suspect]
     Indication: BACK PAIN
     Route: 048
     Dates: end: 20110318
  7. METFORMIN HCL [Suspect]
     Indication: TYPE 2 DIABETES MELLITUS
     Route: 048
     Dates: end: 20110318
  8. NEXIUM [Suspect]
     Indication: TYPE 2 DIABETES MELLITUS
     Route: 048
     Dates: end: 20110318
  9. ACETAMINOPHEN [Concomitant]
     Indication: BACK PAIN
     Route: 048
     Dates: start: 20101201

REACTIONS (2)
  - ABSCESS [None]
  - AGRANULOCYTOSIS [None]
